FAERS Safety Report 19505688 (Version 2)
Quarter: 2021Q3

REPORT INFORMATION
  Report Type: Report from Study
  Country: AR (occurrence: AR)
  Receive Date: 20210708
  Receipt Date: 20210722
  Transmission Date: 20211014
  Serious: Yes (Other)
  Sender: FDA-Public Use
  Company Number: NVSC2019AR066815

PATIENT
  Age: 75 Year
  Sex: Female
  Weight: 64 kg

DRUGS (5)
  1. TAFIROL [Concomitant]
     Indication: PAIN
     Dosage: UNK
     Route: 065
  2. COSENTYX [Suspect]
     Active Substance: SECUKINUMAB
     Dosage: 300 MG, QMO
     Route: 058
     Dates: start: 20181227, end: 202009
  3. COSENTYX [Suspect]
     Active Substance: SECUKINUMAB
     Indication: PSORIATIC ARTHROPATHY
     Dosage: 300 MG, QMO
     Route: 058
     Dates: start: 20180827
  4. COSENTYX [Suspect]
     Active Substance: SECUKINUMAB
     Dosage: 150 MG, Q2W (1 OF 150 MG)
     Route: 058
  5. SIMULTAN [Concomitant]
     Indication: HYPERTENSION
     Dosage: UNK, QD (HALF TABLET OF 160 MG)
     Route: 065

REACTIONS (20)
  - Back pain [Not Recovered/Not Resolved]
  - Cough [Unknown]
  - Arrhythmia [Not Recovered/Not Resolved]
  - Muscle rigidity [Not Recovered/Not Resolved]
  - Inappropriate schedule of product administration [Unknown]
  - Peripheral swelling [Unknown]
  - Thyroid disorder [Unknown]
  - Coagulopathy [Unknown]
  - Drug ineffective [Unknown]
  - Pain in extremity [Not Recovered/Not Resolved]
  - Nasopharyngitis [Unknown]
  - Arthralgia [Unknown]
  - Hypertension [Unknown]
  - Bone pain [Not Recovered/Not Resolved]
  - Myalgia [Unknown]
  - Amnesia [Unknown]
  - Psoriatic arthropathy [Unknown]
  - Bronchitis [Recovering/Resolving]
  - Hypoaesthesia [Unknown]
  - Rhinorrhoea [Unknown]

NARRATIVE: CASE EVENT DATE: 20191122
